FAERS Safety Report 15563670 (Version 1)
Quarter: 2018Q4

REPORT INFORMATION
  Report Type: Spontaneous
  Country: ES (occurrence: ES)
  Receive Date: 20181029
  Receipt Date: 20181029
  Transmission Date: 20190205
  Serious: Yes (Hospitalization)
  Sender: FDA-Public Use
  Company Number: ES-TEVA-2018-ES-969840

PATIENT
  Age: 61 Year
  Sex: Female

DRUGS (1)
  1. ACREL 75 MG COMPRIMIDOS RECUBIERTOS CON PELICULA , 2 COMPRIMIDOS [Suspect]
     Active Substance: RISEDRONATE SODIUM
     Route: 048
     Dates: start: 20180829, end: 20180907

REACTIONS (2)
  - Syncope [Recovered/Resolved]
  - Nausea [Recovered/Resolved]

NARRATIVE: CASE EVENT DATE: 20180903
